FAERS Safety Report 24346086 (Version 1)
Quarter: 2024Q3

REPORT INFORMATION
  Report Type: Spontaneous
  Country: US (occurrence: US)
  Receive Date: 20240921
  Receipt Date: 20240921
  Transmission Date: 20241017
  Serious: No
  Sender: AUROBINDO
  Company Number: US-AUROBINDO-AUR-APL-2023-076514

PATIENT
  Age: 57 Year
  Sex: Female
  Weight: 40 kg

DRUGS (1)
  1. ALENDRONATE SODIUM [Suspect]
     Active Substance: ALENDRONATE SODIUM
     Indication: Bone disorder
     Dosage: 1 DOSAGE FORM, EVERY WEEK
     Route: 048

REACTIONS (2)
  - Product package associated injury [Recovered/Resolved]
  - Product packaging difficult to open [Recovered/Resolved]
